FAERS Safety Report 10020794 (Version 1)
Quarter: 2013Q4

REPORT INFORMATION
  Report Type: Spontaneous
  Country: US (occurrence: None)
  Receive Date: 20131203
  Receipt Date: 20131203
  Transmission Date: 20140711
  Serious: Yes (Other)
  Sender: FDA-Public Use
  Company Number: AUR-APL-2013-10050

PATIENT
  Age: 46 Year
  Sex: Male
  Weight: 46.26 kg

DRUGS (12)
  1. CIPROFLOXACIN [Suspect]
     Indication: PRODUCT USED FOR UNKNOWN INDICATION
  2. CLARITHROMYCIN [Suspect]
     Indication: PRODUCT USED FOR UNKNOWN INDICATION
  3. AZITHROMYCIN [Suspect]
     Indication: MYCOBACTERIUM AVIUM COMPLEX INFECTION
  4. DOXYCYCLINE HYCLATE [Suspect]
     Indication: MYCOBACTERIUM AVIUM COMPLEX INFECTION
  5. ETHAMBUTOL [Suspect]
     Indication: MYCOBACTERIUM AVIUM COMPLEX INFECTION
  6. ETHIONAMIDE [Suspect]
     Indication: MYCOBACTERIUM AVIUM COMPLEX INFECTION
  7. KANAMYCIN SULFATE [Suspect]
     Indication: PRODUCT USED FOR UNKNOWN INDICATION
  8. LINEZOLID [Suspect]
     Indication: MYCOBACTERIUM AVIUM COMPLEX INFECTION
  9. RIFABUTIN [Suspect]
     Indication: MYCOBACTERIUM AVIUM COMPLEX INFECTION
  10. STREPTOMYCIN SULFATE [Suspect]
     Indication: PRODUCT USED FOR UNKNOWN INDICATION
  11. AMIKACIN [Suspect]
     Indication: MYCOBACTERIUM AVIUM COMPLEX INFECTION
  12. MOXIFLOXACIN [Suspect]
     Indication: MYCOBACTERIUM AVIUM COMPLEX INFECTION

REACTIONS (5)
  - Drug effect incomplete [None]
  - Abdominal pain [None]
  - Drug resistance [None]
  - Muscle atrophy [None]
  - Mycobacterium test positive [None]
